FAERS Safety Report 9860129 (Version 1)
Quarter: 2014Q1

REPORT INFORMATION
  Report Type: Report from Study
  Country: US (occurrence: US)
  Receive Date: 20140201
  Receipt Date: 20140201
  Transmission Date: 20141002
  Serious: Yes (Hospitalization)
  Sender: FDA-Public Use
  Company Number: US-ROCHE-1341746

PATIENT
  Sex: Male

DRUGS (1)
  1. PERJETA [Suspect]
     Indication: PRODUCT USED FOR UNKNOWN INDICATION
     Dosage: VIAL IS 420MG SIZE.
     Route: 065

REACTIONS (1)
  - Dementia [Unknown]
